FAERS Safety Report 4750377-2 (Version None)
Quarter: 2005Q3

REPORT INFORMATION
  Report Type: 
  Country: None (occurrence: None)
  Receive Date: 20050823
  Receipt Date: 20050815
  Transmission Date: 20060218
  Serious: Yes (Disabling, Other)
  Sender: FDA-Public Use
  Company Number: 2005UW12005

PATIENT
  Age: 72 Year
  Sex: Female
  Weight: 46.3 kg

DRUGS (8)
  1. SEROQUEL [Suspect]
     Indication: DEMENTIA ALZHEIMER'S TYPE
     Route: 048
  2. DETROL LA [Concomitant]
  3. ASPIRIN [Concomitant]
  4. SYNTHROID [Concomitant]
  5. OMEGA 3 [Concomitant]
  6. EXELON [Concomitant]
  7. DOXYCYCLINE [Concomitant]
  8. METROGEL [Concomitant]

REACTIONS (3)
  - ABASIA [None]
  - IRRITABILITY [None]
  - SPEECH DISORDER [None]
